FAERS Safety Report 8184112-5 (Version None)
Quarter: 2012Q1

REPORT INFORMATION
  Report Type: 
  Country: None (occurrence: None)
  Receive Date: 20120305
  Receipt Date: 20120126
  Transmission Date: 20120608
  Serious: Yes (Other)
  Sender: FDA-Public Use
  Company Number: US-ROCHE-1002323

PATIENT
  Sex: Female
  Weight: 61.29 kg

DRUGS (1)
  1. ACCUTANE [Suspect]
     Indication: PRODUCT USED FOR UNKNOWN INDICATION
     Dates: start: 20060302, end: 20060403

REACTIONS (4)
  - COLITIS ULCERATIVE [None]
  - CYSTITIS [None]
  - INFLAMMATORY BOWEL DISEASE [None]
  - ANXIETY [None]
